FAERS Safety Report 23951092 (Version 1)
Quarter: 2024Q2

REPORT INFORMATION
  Report Type: Spontaneous
  Country: CN (occurrence: CN)
  Receive Date: 20240607
  Receipt Date: 20240607
  Transmission Date: 20240716
  Serious: Yes (Hospitalization)
  Sender: FDA-Public Use
  Company Number: CN-Merck Healthcare KGaA-2024029902

PATIENT
  Age: 59 Year
  Sex: Male
  Weight: 63 kg

DRUGS (4)
  1. ERBITUX [Suspect]
     Active Substance: CETUXIMAB
     Indication: Tongue neoplasm malignant stage unspecified
     Dosage: 600 MG, UNKNOWN
     Route: 041
     Dates: start: 20240223
  2. DOCETAXEL [Suspect]
     Active Substance: DOCETAXEL\DOCETAXEL ANHYDROUS
     Indication: Tongue neoplasm malignant stage unspecified
     Dosage: 100 MG, DAILY
     Route: 041
     Dates: start: 20240223, end: 20240225
  3. CISPLATIN [Suspect]
     Active Substance: CISPLATIN
     Indication: Tongue neoplasm malignant stage unspecified
     Dosage: 120 MG, DAILY
     Route: 041
     Dates: start: 20240223, end: 20240225
  4. TORIPALIMAB [Suspect]
     Active Substance: TORIPALIMAB
     Indication: Tongue neoplasm malignant stage unspecified
     Dosage: 240 MG, DAILY
     Route: 041
     Dates: start: 20240223, end: 20240225

REACTIONS (1)
  - Myelosuppression [Recovering/Resolving]

NARRATIVE: CASE EVENT DATE: 20240301
